FAERS Safety Report 12644461 (Version 1)
Quarter: 2016Q3

REPORT INFORMATION
  Report Type: Report from Study
  Country: BR (occurrence: BR)
  Receive Date: 20160811
  Receipt Date: 20160811
  Transmission Date: 20161109
  Serious: Yes (Hospitalization)
  Sender: FDA-Public Use
  Company Number: PHHY2016BR110453

PATIENT
  Sex: Female
  Weight: 18 kg

DRUGS (1)
  1. EXJADE [Suspect]
     Active Substance: DEFERASIROX
     Indication: SICKLE CELL ANAEMIA
     Dosage: 15 MG/KG (1 TABLET OF 250 MG), QD
     Route: 065

REACTIONS (2)
  - Influenza [Recovering/Resolving]
  - Back pain [Recovering/Resolving]
